FAERS Safety Report 4572002-6 (Version None)
Quarter: 2005Q1

REPORT INFORMATION
  Report Type: 
  Country: None (occurrence: None)
  Receive Date: 20050203
  Receipt Date: 20050203
  Transmission Date: 20050727
  Serious: Yes (Disabling)
  Sender: FDA-Public Use
  Company Number: None

PATIENT
  Sex: Female

DRUGS (2)
  1. CIPRO XR [Suspect]
     Indication: PROTEUS INFECTION
     Dosage: 1 PO EACH DAY
     Route: 048
     Dates: start: 20041130, end: 20041205
  2. CIPRO XR [Suspect]
     Indication: URINARY TRACT INFECTION
     Dosage: 1 PO EACH DAY
     Route: 048
     Dates: start: 20041130, end: 20041205

REACTIONS (11)
  - ANOREXIA [None]
  - ARTHRALGIA [None]
  - ASTHENIA [None]
  - CONFUSIONAL STATE [None]
  - COORDINATION ABNORMAL [None]
  - DEPRESSION [None]
  - HALLUCINATION [None]
  - HYPOAESTHESIA [None]
  - INSOMNIA [None]
  - TREMOR [None]
  - VISION BLURRED [None]
